FAERS Safety Report 5512798-X (Version None)
Quarter: 2007Q4

REPORT INFORMATION
  Report Type: 
  Country: None (occurrence: None)
  Receive Date: 20071108
  Receipt Date: 20071025
  Transmission Date: 20080405
  Serious: Yes (Life-Threatening, Hospitalization)
  Sender: FDA-Public Use
  Company Number: 100#03#2007-04353

PATIENT
  Age: 61 Year

DRUGS (7)
  1. ORANEX (AZITHROMYCIN) (AZITHROMYCIN) [Suspect]
     Indication: DRUG USE FOR UNKNOWN INDICATION
     Dosage: 500 MG ONCE A DAY ORAL
     Route: 048
     Dates: start: 20070804, end: 20070804
  2. GRIPEX NOC (PARACETAMOL, PSEUDOEPHEDRINE, DEXTROMETHORPHAN) [Suspect]
     Indication: DRUG USE FOR UNKNOWN INDICATION
  3. ENARENAL (ENALAPRIL MALEATE) (ENALAPRIL) [Concomitant]
  4. AMLOZEK (AMLODIPINE) (AMLODIPINE) [Concomitant]
  5. KALDYUM (POTASSIUM CHLORIDE) (POTASSIUM CHLORIDE) [Concomitant]
  6. INDAPEN (INDAPAMIDE) (INDAPAMIDE) [Concomitant]
  7. MAGNE B6 (MAGNESIUM, PYRIDOXIN) [Concomitant]

REACTIONS (2)
  - RASH GENERALISED [None]
  - TONGUE OEDEMA [None]
